FAERS Safety Report 9760341 (Version 1)
Quarter: 2013Q4

REPORT INFORMATION
  Report Type: Spontaneous
  Country: US (occurrence: US)
  Receive Date: 20131216
  Receipt Date: 20131216
  Transmission Date: 20140711
  Serious: No
  Sender: FDA-Public Use
  Company Number: US-GILEAD-2010-0029372

PATIENT
  Age: 73 Year
  Sex: Female

DRUGS (7)
  1. LETAIRIS [Suspect]
     Indication: PULMONARY ARTERIAL HYPERTENSION
     Route: 048
     Dates: start: 20100423, end: 20100502
  2. CLARINEX [Concomitant]
  3. ANALPRAM-HC [Concomitant]
  4. VICODIN [Concomitant]
  5. AMITRIPTYLINE [Concomitant]
  6. RESTATIS [Concomitant]
  7. PERIOGAURD [Concomitant]

REACTIONS (1)
  - Oedema [Recovered/Resolved]
